FAERS Safety Report 21946348 (Version 1)
Quarter: 2023Q1

REPORT INFORMATION
  Report Type: Spontaneous
  Country: US (occurrence: US)
  Receive Date: 20230202
  Receipt Date: 20230202
  Transmission Date: 20230417
  Serious: Yes (Death, Hospitalization, Other)
  Sender: FDA-Public Use
  Company Number: US-PFIZER INC-202300045200

PATIENT
  Age: 40 Year
  Sex: Male

DRUGS (16)
  1. MORPHINE SULFATE [Suspect]
     Active Substance: MORPHINE SULFATE
     Dosage: INGESTION
     Route: 048
  2. MORPHINE SULFATE [Suspect]
     Active Substance: MORPHINE SULFATE
     Dosage: UNK
  3. HYDROCHLORIC ACID [Suspect]
     Active Substance: HYDROCHLORIC ACID
     Dosage: INGESTION
     Route: 048
  4. HYDROCHLORIC ACID [Suspect]
     Active Substance: HYDROCHLORIC ACID
     Dosage: UNK
  5. AMPHETAMINE [Suspect]
     Active Substance: AMPHETAMINE
     Dosage: INGESTION
     Route: 048
  6. AMPHETAMINE [Suspect]
     Active Substance: AMPHETAMINE
     Dosage: UNK
     Route: 065
  7. CANNABIS SATIVA SUBSP. INDICA TOP [Suspect]
     Active Substance: CANNABIS SATIVA SUBSP. INDICA TOP
     Dosage: INGESTION
     Route: 048
  8. CANNABIS SATIVA SUBSP. INDICA TOP [Suspect]
     Active Substance: CANNABIS SATIVA SUBSP. INDICA TOP
     Dosage: UNK
  9. METHAMPHETAMINE [Suspect]
     Active Substance: METHAMPHETAMINE
     Dosage: INGESTION
     Route: 048
  10. METHAMPHETAMINE [Suspect]
     Active Substance: METHAMPHETAMINE
     Dosage: UNK
  11. APAP [Suspect]
     Active Substance: ACETAMINOPHEN
     Dosage: INGESTION
     Route: 048
  12. APAP [Suspect]
     Active Substance: ACETAMINOPHEN
     Dosage: UNK
  13. CAFFEINE [Suspect]
     Active Substance: CAFFEINE
     Dosage: INGESTION
     Route: 048
  14. CAFFEINE [Suspect]
     Active Substance: CAFFEINE
     Dosage: UNK
  15. NICOTINE [Suspect]
     Active Substance: NICOTINE
     Dosage: INGESTION
     Route: 048
  16. NICOTINE [Suspect]
     Active Substance: NICOTINE
     Dosage: UNK

REACTIONS (2)
  - Completed suicide [Fatal]
  - Toxicity to various agents [Fatal]

NARRATIVE: CASE EVENT DATE: 20210101
